FAERS Safety Report 16145376 (Version 1)
Quarter: 2019Q2

REPORT INFORMATION
  Report Type: Report from Study
  Country: AU (occurrence: AU)
  Receive Date: 20190402
  Receipt Date: 20190402
  Transmission Date: 20190711
  Serious: Yes (Hospitalization)
  Sender: FDA-Public Use
  Company Number: AU-ROCHE-2266159

PATIENT
  Age: 63 Year
  Sex: Female

DRUGS (2)
  1. ACTEMRA [Suspect]
     Active Substance: TOCILIZUMAB
     Route: 042
     Dates: start: 20120306
  2. ACTEMRA [Suspect]
     Active Substance: TOCILIZUMAB
     Indication: RHEUMATOID ARTHRITIS
     Route: 042
     Dates: start: 20170803

REACTIONS (6)
  - Purpura [Unknown]
  - Myocardial infarction [Recovered/Resolved]
  - Pruritus [Unknown]
  - Platelet count decreased [Unknown]
  - Burning sensation [Unknown]
  - Gastritis [Unknown]

NARRATIVE: CASE EVENT DATE: 20190212
